FAERS Safety Report 5022558-4 (Version None)
Quarter: 2006Q2

REPORT INFORMATION
  Report Type: 
  Country: None (occurrence: None)
  Receive Date: 20060605
  Receipt Date: 20060518
  Transmission Date: 20061013
  Serious: Yes (Other)
  Sender: FDA-Public Use
  Company Number: DE200605003953

PATIENT
  Sex: Male

DRUGS (1)
  1. CYMBALTA [Suspect]
     Indication: DEPRESSION
     Dosage: 60 MG, DAILY (1/D), UNK
     Dates: start: 20060501

REACTIONS (7)
  - ANOREXIA [None]
  - COGNITIVE DISORDER [None]
  - DIARRHOEA [None]
  - FLATULENCE [None]
  - HYPOKINESIA [None]
  - INSOMNIA [None]
  - VOMITING [None]
